FAERS Safety Report 16875354 (Version 2)
Quarter: 2019Q4

REPORT INFORMATION
  Report Type: Report from Study
  Country: None (occurrence: BR)
  Receive Date: 20191002
  Receipt Date: 20191010
  Transmission Date: 20200122
  Serious: Yes (Hospitalization, Other)
  Sender: FDA-Public Use
  Company Number: BR-ABBVIE-19K-020-2940517-00

PATIENT
  Age: 0 Year
  Sex: Female

DRUGS (1)
  1. SYNAGIS [Suspect]
     Active Substance: PALIVIZUMAB
     Indication: PRODUCT USED FOR UNKNOWN INDICATION
     Route: 050
     Dates: start: 20190226

REACTIONS (10)
  - Pneumonia [Unknown]
  - Pneumonia [Recovered/Resolved]
  - Lung disorder [Unknown]
  - Aspiration [Unknown]
  - Bronchiolitis [Recovered/Resolved]
  - Pneumonia [Recovered/Resolved]
  - Pneumonia [Recovered/Resolved]
  - Bronchiolitis [Recovered/Resolved]
  - Laryngitis [Unknown]
  - Lung disorder [Recovered/Resolved]

NARRATIVE: CASE EVENT DATE: 2019
